FAERS Safety Report 6613134-8 (Version None)
Quarter: 2010Q1

REPORT INFORMATION
  Report Type: 
  Country: None (occurrence: None)
  Receive Date: 20100304
  Receipt Date: 20100205
  Transmission Date: 20100710
  Serious: Yes (Other)
  Sender: FDA-Public Use
  Company Number: GB-JNJFOC-20100105887

PATIENT
  Sex: Female

DRUGS (2)
  1. CILEST [Suspect]
     Indication: CONTRACEPTION
     Route: 048
  2. ROACCUTANE [Concomitant]
     Indication: ACNE
     Route: 048

REACTIONS (2)
  - ANTINUCLEAR ANTIBODY INCREASED [None]
  - UVEITIS [None]
